FAERS Safety Report 23621798 (Version 1)
Quarter: 2024Q1

REPORT INFORMATION
  Report Type: Report from Study
  Country: AR (occurrence: DE)
  Receive Date: 20240312
  Receipt Date: 20240312
  Transmission Date: 20240409
  Serious: Yes (Hospitalization)
  Sender: FDA-Public Use
  Company Number: AR-ABBVIE-5674203

PATIENT
  Age: 18 Year
  Sex: Female

DRUGS (1)
  1. RINVOQ [Suspect]
     Active Substance: UPADACITINIB
     Indication: Dermatitis atopic
     Dosage: FORM STRENGTH: 15 MILLIGRAM
     Route: 048
     Dates: start: 20230731, end: 20240305

REACTIONS (7)
  - Epstein-Barr virus infection [Not Recovered/Not Resolved]
  - Dehydration [Recovered/Resolved]
  - Tonsillitis [Unknown]
  - Ear pain [Recovering/Resolving]
  - Dysphagia [Recovering/Resolving]
  - Immunodeficiency [Unknown]
  - Dermatitis atopic [Not Recovered/Not Resolved]

NARRATIVE: CASE EVENT DATE: 20240201
